FAERS Safety Report 7237421-8 (Version None)
Quarter: 2011Q1

REPORT INFORMATION
  Report Type: 
  Country: None (occurrence: None)
  Receive Date: 20110121
  Receipt Date: 20110112
  Transmission Date: 20110831
  Serious: Yes (Hospitalization)
  Sender: FDA-Public Use
  Company Number: KR-NOVOPROD-318441

PATIENT
  Sex: Male
  Weight: 24.2 kg

DRUGS (2)
  1. NORDITROPIN NORDIFLEX [Suspect]
     Indication: NOONAN SYNDROME
     Dosage: 4.8 U, QD
     Route: 058
     Dates: start: 20100416, end: 20101012
  2. NORDITROPIN NORDIFLEX [Suspect]
     Dosage: 4.8 UNK, QD
     Route: 058
     Dates: start: 20101028

REACTIONS (1)
  - CONVULSION [None]
